FAERS Safety Report 21848620 (Version 1)
Quarter: 2023Q1

REPORT INFORMATION
  Report Type: Report from Study
  Country: US (occurrence: US)
  Receive Date: 20230111
  Receipt Date: 20230111
  Transmission Date: 20230418
  Serious: No
  Sender: FDA-Public Use
  Company Number: US-ABBVIE-4225923

PATIENT
  Sex: Female

DRUGS (1)
  1. RINVOQ [Suspect]
     Active Substance: UPADACITINIB
     Indication: Colitis ulcerative
     Route: 048
     Dates: start: 20220826

REACTIONS (5)
  - Oesophageal ulcer [Unknown]
  - Aphonia [Unknown]
  - Eating disorder [Unknown]
  - Ear pain [Unknown]
  - Pain in jaw [Unknown]
